FAERS Safety Report 4711504-6 (Version None)
Quarter: 2005Q3

REPORT INFORMATION
  Report Type: 
  Country: None (occurrence: None)
  Receive Date: 20050711
  Receipt Date: 20050711
  Transmission Date: 20060218
  Serious: Yes (Other)
  Sender: FDA-Public Use
  Company Number: None

PATIENT
  Age: 50 Year
  Sex: Female
  Weight: 61.6892 kg

DRUGS (4)
  1. PAXIL [Suspect]
     Indication: DEPRESSION
     Dosage: 40 MG   QD    ORAL
     Route: 048
     Dates: start: 19881108, end: 20050708
  2. PAXIL [Suspect]
     Indication: HEADACHE
     Dosage: 40 MG   QD    ORAL
     Route: 048
     Dates: start: 19881108, end: 20050708
  3. WELLBUTRIN XL [Suspect]
     Indication: DEPRESSION
     Dosage: 450 MG    QD    ORAL
     Route: 048
     Dates: start: 20010508, end: 20050708
  4. PROZAC [Concomitant]

REACTIONS (5)
  - ANGER [None]
  - EMOTIONAL DISORDER [None]
  - HOSTILITY [None]
  - MUSCLE TWITCHING [None]
  - NERVOUSNESS [None]
